FAERS Safety Report 24200934 (Version 1)
Quarter: 2024Q3

REPORT INFORMATION
  Report Type: Spontaneous
  Country: CN (occurrence: CN)
  Receive Date: 20240812
  Receipt Date: 20240812
  Transmission Date: 20241017
  Serious: Yes (Other)
  Sender: ROCHE
  Company Number: CN-ROCHE-10000049282

PATIENT
  Age: 71 Year
  Sex: Female
  Weight: 56 kg

DRUGS (1)
  1. PERTUZUMAB [Suspect]
     Active Substance: PERTUZUMAB
     Indication: Breast cancer
     Route: 050
     Dates: start: 20240722, end: 20240722

REACTIONS (4)
  - Myalgia [Recovered/Resolved]
  - Chills [Recovered/Resolved]
  - Blood pressure increased [Recovering/Resolving]
  - Pyrexia [Recovered/Resolved]

NARRATIVE: CASE EVENT DATE: 20240722
